FAERS Safety Report 4779968-X (Version None)
Quarter: 2005Q3

REPORT INFORMATION
  Report Type: 
  Country: None (occurrence: None)
  Receive Date: 20050927
  Receipt Date: 20050915
  Transmission Date: 20060218
  Serious: Yes (Other)
  Sender: FDA-Public Use
  Company Number: RU-GLAXOSMITHKLINE-B0394822A

PATIENT
  Age: 22 Year
  Sex: Female

DRUGS (2)
  1. PAXIL [Suspect]
     Indication: DEPRESSION
     Dosage: 30MG PER DAY
     Route: 048
     Dates: start: 20050501, end: 20050501
  2. RISPOLEPT [Concomitant]
     Indication: DEPRESSION
     Dosage: 3MG PER DAY
     Route: 065

REACTIONS (7)
  - ABNORMAL BEHAVIOUR [None]
  - AFFECTIVE DISORDER [None]
  - ALCOHOL USE [None]
  - ANTISOCIAL BEHAVIOUR [None]
  - INSOMNIA [None]
  - MANIA [None]
  - PSYCHOMOTOR HYPERACTIVITY [None]
